FAERS Safety Report 4317366-3 (Version None)
Quarter: 2004Q1

REPORT INFORMATION
  Report Type: 
  Country: None (occurrence: None)
  Receive Date: 20040316
  Receipt Date: 20040316
  Transmission Date: 20041129
  Serious: No
  Sender: FDA-Public Use
  Company Number: None

PATIENT
  Age: 33 Year
  Sex: Female
  Weight: 119.7496 kg

DRUGS (1)
  1. WELLBUTRIN XL [Suspect]
     Indication: DEPRESSION
     Dosage: 150 MG DAILY
     Dates: start: 20040209, end: 20040301

REACTIONS (3)
  - HYPERHIDROSIS [None]
  - PRURITUS [None]
  - TREMOR [None]
